FAERS Safety Report 5695858-2 (Version None)
Quarter: 2008Q2

REPORT INFORMATION
  Report Type: 
  Country: None (occurrence: None)
  Receive Date: 20080407
  Receipt Date: 20080326
  Transmission Date: 20081010
  Serious: Yes (Hospitalization, Other)
  Sender: FDA-Public Use
  Company Number: US-ROCHE-521792

PATIENT
  Sex: Male
  Weight: 81.6 kg

DRUGS (3)
  1. ACCUTANE [Suspect]
     Indication: ACNE CONGLOBATA
     Dosage: HE WAS ADVISED TO SKIP WEDNESDAY NIGHT EVERY OTHER WEEK
     Route: 048
     Dates: start: 19950415, end: 19950915
  2. SUMYCIN [Concomitant]
     Indication: ACNE CONGLOBATA
  3. RETIN-A [Concomitant]
     Indication: ACNE CONGLOBATA

REACTIONS (9)
  - BRONCHITIS [None]
  - BRONCHOSPASM [None]
  - COLITIS [None]
  - COLITIS ULCERATIVE [None]
  - GASTROENTERITIS [None]
  - ILEUS [None]
  - INFLAMMATORY BOWEL DISEASE [None]
  - IRRITABLE BOWEL SYNDROME [None]
  - RHINITIS ALLERGIC [None]
